FAERS Safety Report 6619387-4 (Version None)
Quarter: 2010Q1

REPORT INFORMATION
  Report Type: 
  Country: None (occurrence: None)
  Receive Date: 20100309
  Receipt Date: 20100226
  Transmission Date: 20100710
  Serious: Yes (Hospitalization)
  Sender: FDA-Public Use
  Company Number: US-BIOGENIDEC-2009BI032626

PATIENT
  Age: 48 Year
  Sex: Female
  Weight: 60 kg

DRUGS (18)
  1. TYSABRI [Suspect]
     Indication: MULTIPLE SCLEROSIS
     Route: 042
     Dates: start: 20090311, end: 20091015
  2. BACLOFEN [Concomitant]
     Route: 048
     Dates: start: 20080114
  3. CALCIUM PLUS VITAMIN D [Concomitant]
     Route: 048
     Dates: start: 20080717
  4. DEPAKOTE [Concomitant]
     Route: 048
     Dates: start: 20090126
  5. FOLIC ACID [Concomitant]
     Route: 048
     Dates: start: 20080717
  6. FOSAMAX [Concomitant]
     Dates: start: 20080717
  7. GABAPENTIN [Concomitant]
     Route: 048
     Dates: start: 20071221
  8. IMITREX [Concomitant]
     Indication: MIGRAINE
     Route: 048
     Dates: start: 20080717
  9. IMODIUM [Concomitant]
     Route: 048
     Dates: start: 20090610
  10. MULTI-VITAMIN [Concomitant]
     Route: 048
     Dates: start: 20080717
  11. NYSTATIN SWISH AND SWALLOW [Concomitant]
     Route: 048
     Dates: start: 20090610
  12. LOVAZA [Concomitant]
     Route: 048
     Dates: start: 20090610
  13. OXYBUTYNIN ER [Concomitant]
     Route: 048
     Dates: start: 20080717
  14. TEMAZEPAM [Concomitant]
     Route: 048
     Dates: start: 20090512
  15. VANCOMYCIN [Concomitant]
     Route: 042
     Dates: start: 20090610
  16. VITAMIN A [Concomitant]
     Route: 048
     Dates: start: 20080717
  17. ZINC [Concomitant]
     Route: 048
     Dates: start: 20080717
  18. SOLU-MEDROL [Concomitant]
     Indication: OPTIC NEURITIS
     Route: 042

REACTIONS (2)
  - ENTEROBACTER INFECTION [None]
  - PYELONEPHRITIS [None]
